FAERS Safety Report 8374762-5 (Version None)
Quarter: 2012Q2

REPORT INFORMATION
  Report Type: 
  Country: None (occurrence: None)
  Receive Date: 20120521
  Receipt Date: 20120508
  Transmission Date: 20120825
  Serious: Yes (Hospitalization, Other)
  Sender: FDA-Public Use
  Company Number: US-JNJFOC-20120507982

PATIENT
  Sex: Female

DRUGS (3)
  1. LEVAQUIN [Suspect]
     Route: 048
     Dates: start: 20101209, end: 20101201
  2. LEVAQUIN [Suspect]
     Indication: PNEUMONIA
     Route: 048
     Dates: start: 20101222, end: 20101201
  3. LEVAQUIN [Suspect]
     Route: 048
     Dates: start: 20101001, end: 20101001

REACTIONS (5)
  - CONFUSIONAL STATE [None]
  - DRUG INEFFECTIVE [None]
  - BRONCHOPULMONARY ASPERGILLOSIS [None]
  - ANXIETY [None]
  - DEPRESSION [None]
